FAERS Safety Report 16672645 (Version 2)
Quarter: 2019Q3

REPORT INFORMATION
  Report Type: Spontaneous
  Country: AU (occurrence: AU)
  Receive Date: 20190806
  Receipt Date: 20190816
  Transmission Date: 20191004
  Serious: Yes (Other)
  Sender: FDA-Public Use
  Company Number: AU-AMGEN-AUSSP2019123407

PATIENT
  Age: 56 Year
  Sex: Female

DRUGS (3)
  1. FILGRASTIM [Suspect]
     Active Substance: FILGRASTIM
     Indication: NEUTROPENIA
  2. FILGRASTIM [Suspect]
     Active Substance: FILGRASTIM
     Indication: HYPOGAMMAGLOBULINAEMIA
  3. FILGRASTIM [Suspect]
     Active Substance: FILGRASTIM
     Indication: PANCYTOPENIA
     Dosage: UNK
     Route: 058

REACTIONS (9)
  - Von Willebrand^s disease [Unknown]
  - Serum sickness [Unknown]
  - Joint swelling [Recovering/Resolving]
  - Post procedural haematoma [Unknown]
  - Impaired healing [Unknown]
  - Mammoplasty [Unknown]
  - Off label use [Unknown]
  - Wound dehiscence [Unknown]
  - PSTPIP1-associated myeloid-related proteinaemia inflammatory syndrome [Unknown]
